FAERS Safety Report 5143548-7 (Version None)
Quarter: 2006Q4

REPORT INFORMATION
  Report Type: 
  Country: None (occurrence: None)
  Receive Date: 20061030
  Receipt Date: 20061016
  Transmission Date: 20070319
  Serious: Yes (Death, Hospitalization)
  Sender: FDA-Public Use
  Company Number: 2006-02598

PATIENT
  Age: 55 Year
  Sex: Male

DRUGS (6)
  1. VELCADE [Suspect]
     Indication: MULTIPLE MYELOMA
     Dosage: 1.00 MG/M2
     Dates: end: 20050412
  2. DOXIL [Suspect]
     Indication: MULTIPLE MYELOMA
     Dosage: 30.00 MG/M2
     Dates: end: 20050412
  3. DEXAMETHASONE TAB [Suspect]
     Indication: MULTIPLE MYELOMA
     Dosage: 40.00 MG
     Dates: end: 20050412
  4. ZOLOFT [Concomitant]
  5. ARANESP [Concomitant]
  6. ACYCLOVIR [Concomitant]

REACTIONS (4)
  - DISEASE PROGRESSION [None]
  - FATIGUE [None]
  - HAEMATOTOXICITY [None]
  - PNEUMONIA [None]
